FAERS Safety Report 8171817-5 (Version None)
Quarter: 2012Q1

REPORT INFORMATION
  Report Type: 
  Country: None (occurrence: None)
  Receive Date: 20120228
  Receipt Date: 20120220
  Transmission Date: 20120608
  Serious: Yes (Hospitalization, Other)
  Sender: FDA-Public Use
  Company Number: JP-GLAXOSMITHKLINE-B0783768A

PATIENT
  Age: 68 Year
  Sex: Female

DRUGS (1)
  1. LAMIVUDINE (EPIVIR HBV) [Suspect]
     Indication: HEPATITIS B
     Route: 048

REACTIONS (6)
  - MUSCULAR WEAKNESS [None]
  - MITOCHONDRIAL MYOPATHY [None]
  - MUSCLE ATROPHY [None]
  - CSF TEST ABNORMAL [None]
  - MITOCHONDRIAL DNA DELETION [None]
  - LACTATE PYRUVATE RATIO INCREASED [None]
